FAERS Safety Report 10640798 (Version 1)
Quarter: 2014Q4

REPORT INFORMATION
  Report Type: Spontaneous
  Country: US (occurrence: None)
  Receive Date: 20141208
  Receipt Date: 20141208
  Transmission Date: 20150529
  Serious: No
  Sender: FDA-Public Use
  Company Number: None

PATIENT

DRUGS (2)
  1. LIPOSOMAL DOXORUBICIN [Suspect]
     Active Substance: DOXORUBICIN HYDROCHLORIDE
  2. DOXORUBICIN [Suspect]
     Active Substance: DOXORUBICIN

REACTIONS (6)
  - Flushing [None]
  - Wrong drug administered [None]
  - Nausea [None]
  - Hypotension [None]
  - Infusion related reaction [None]
  - Vomiting [None]
